FAERS Safety Report 17606484 (Version 1)
Quarter: 2020Q1

REPORT INFORMATION
  Report Type: Spontaneous
  Country: US (occurrence: US)
  Receive Date: 20200331
  Receipt Date: 20200331
  Transmission Date: 20200409
  Serious: No
  Sender: FDA-Public Use
  Company Number: US-VALIDUS PHARMACEUTICALS LLC-US-2019VAL000039

PATIENT
  Sex: Female
  Weight: 74 kg

DRUGS (1)
  1. BUMEX [Suspect]
     Active Substance: BUMETANIDE
     Indication: FLUID RETENTION
     Dosage: UNK, QD
     Route: 065

REACTIONS (1)
  - Blood potassium decreased [Unknown]
